FAERS Safety Report 15479301 (Version 1)
Quarter: 2018Q4

REPORT INFORMATION
  Report Type: Report from Study
  Country: CA (occurrence: CA)
  Receive Date: 20181009
  Receipt Date: 20181009
  Transmission Date: 20190205
  Serious: Yes (Other)
  Sender: FDA-Public Use
  Company Number: CA-JNJFOC-20180605461

PATIENT
  Age: 64 Year
  Sex: Female
  Weight: 79.9 kg

DRUGS (1)
  1. REMICADE [Suspect]
     Active Substance: INFLIXIMAB
     Indication: CROHN^S DISEASE
     Route: 042
     Dates: start: 20120801

REACTIONS (13)
  - Rhinorrhoea [Unknown]
  - Cellulitis [Recovering/Resolving]
  - Eye pruritus [Unknown]
  - Dysphonia [Unknown]
  - Influenza [Recovered/Resolved]
  - Aphthous ulcer [Recovering/Resolving]
  - Sneezing [Unknown]
  - Skin cancer [Unknown]
  - Fatigue [Unknown]
  - Nausea [Unknown]
  - Abdominal pain [Not Recovered/Not Resolved]
  - Lacrimation increased [Unknown]
  - Diarrhoea [Not Recovered/Not Resolved]

NARRATIVE: CASE EVENT DATE: 20180529
